FAERS Safety Report 7215302-3 (Version None)
Quarter: 2011Q1

REPORT INFORMATION
  Report Type: 
  Country: None (occurrence: None)
  Receive Date: 20110107
  Receipt Date: 20101231
  Transmission Date: 20110831
  Serious: Yes (Death)
  Sender: FDA-Public Use
  Company Number: US-PFIZER INC-2011002758

PATIENT
  Age: 67 Year
  Sex: Male

DRUGS (1)
  1. VERAPAMIL HCL [Suspect]

REACTIONS (1)
  - COMPLETED SUICIDE [None]
